FAERS Safety Report 6851005-2 (Version None)
Quarter: 2010Q3

REPORT INFORMATION
  Report Type: 
  Country: None (occurrence: None)
  Receive Date: 20100716
  Receipt Date: 20071023
  Transmission Date: 20110219
  Serious: No
  Sender: FDA-Public Use
  Company Number: US-PFIZER INC-2007090869

PATIENT
  Age: 70 Year
  Sex: Male

DRUGS (6)
  1. CHANTIX [Suspect]
     Indication: SMOKING CESSATION THERAPY
     Route: 048
     Dates: start: 20070930
  2. TOPROL-XL [Concomitant]
     Indication: HYPERTENSION
  3. HYDROCHLOROTHIAZIDE [Concomitant]
  4. NEXIUM [Concomitant]
     Indication: ULCER
  5. ALL OTHER THERAPEUTIC PRODUCTS [Concomitant]
  6. TERAZOSIN HCL [Concomitant]
     Indication: PROSTATIC DISORDER

REACTIONS (4)
  - ABNORMAL DREAMS [None]
  - CONSTIPATION [None]
  - SLEEP DISORDER [None]
  - WEIGHT INCREASED [None]
